FAERS Safety Report 7014710-3 (Version None)
Quarter: 2010Q3

REPORT INFORMATION
  Report Type: 
  Country: None (occurrence: None)
  Receive Date: 20100927
  Receipt Date: 20100914
  Transmission Date: 20110219
  Serious: Yes (Other)
  Sender: FDA-Public Use
  Company Number: PHHY2010US61245

PATIENT
  Sex: Female

DRUGS (4)
  1. DIOVAN [Suspect]
     Dosage: 160 MG
  2. POTASSIUM CITRATE [Suspect]
     Dosage: 12.5 MG
  3. NEXIUM [Concomitant]
  4. ALLOPURINOL [Concomitant]
     Dosage: 300 MG OD

REACTIONS (2)
  - DIZZINESS [None]
  - NEPHROLITHIASIS [None]
